FAERS Safety Report 21696737 (Version 1)
Quarter: 2022Q4

REPORT INFORMATION
  Report Type: Report from Study
  Country: US (occurrence: US)
  Receive Date: 20221207
  Receipt Date: 20221207
  Transmission Date: 20230112
  Serious: Yes (Hospitalization, Other)
  Sender: FDA-Public Use
  Company Number: US-ABBVIE-4226848

PATIENT
  Sex: Female

DRUGS (1)
  1. IMBRUVICA [Suspect]
     Active Substance: IBRUTINIB
     Indication: Product used for unknown indication
     Route: 048

REACTIONS (5)
  - Emotional disorder [Recovered/Resolved]
  - Loss of personal independence in daily activities [Unknown]
  - Bone cancer [Not Recovered/Not Resolved]
  - Internal haemorrhage [Unknown]
  - Colon cancer [Not Recovered/Not Resolved]
